FAERS Safety Report 22529790 (Version 1)
Quarter: 2023Q2

REPORT INFORMATION
  Report Type: Spontaneous
  Country: US (occurrence: US)
  Receive Date: 20230607
  Receipt Date: 20230607
  Transmission Date: 20230721
  Serious: Yes (Life-Threatening)
  Sender: FDA-Public Use
  Company Number: US-AUROBINDO-AUR-APL-2023-040406

PATIENT
  Age: 31 Year
  Sex: Female

DRUGS (9)
  1. ADENOSINE [Suspect]
     Active Substance: ADENOSINE
     Indication: Atrial tachycardia
     Dosage: UNK
     Route: 040
  2. DILTIAZEM [Suspect]
     Active Substance: DILTIAZEM
     Indication: Atrial tachycardia
     Dosage: 10 MG/MIN
     Route: 040
  3. FLECAINIDE [Suspect]
     Active Substance: FLECAINIDE
     Indication: Atrial tachycardia
     Dosage: 100 MILLIGRAM, TWO TIMES A DAY
     Route: 048
  4. METOPROLOL [Suspect]
     Active Substance: METOPROLOL
     Indication: Atrial tachycardia
     Dosage: UNK
     Route: 040
  5. SOTALOL HYDROCHLORIDE [Suspect]
     Active Substance: SOTALOL HYDROCHLORIDE
     Indication: Atrial tachycardia
     Dosage: 40 MILLIGRAM, TWO TIMES A DAY
     Route: 065
  6. SOTALOL HYDROCHLORIDE [Suspect]
     Active Substance: SOTALOL HYDROCHLORIDE
     Dosage: 120 MILLIGRAM
     Route: 065
  7. METOPROLOL TARTRATE [Suspect]
     Active Substance: METOPROLOL TARTRATE
     Indication: Atrial tachycardia
     Dosage: 100 MILLIGRAM, TWO TIMES A DAY
     Route: 065
  8. ISOPROTERENOL HYDROCHLORIDE [Concomitant]
     Active Substance: ISOPROTERENOL HYDROCHLORIDE
     Indication: Product used for unknown indication
     Dosage: UNK
     Route: 065
  9. PHENYLEPHRINE [Concomitant]
     Active Substance: PHENYLEPHRINE HYDROCHLORIDE
     Indication: Product used for unknown indication
     Dosage: UNK
     Route: 042

REACTIONS (2)
  - Drug ineffective [Unknown]
  - Exposure during pregnancy [Unknown]
